FAERS Safety Report 8306859-X (Version None)
Quarter: 2012Q1

REPORT INFORMATION
  Report Type: 
  Country: None (occurrence: None)
  Receive Date: 20120327
  Receipt Date: 20100315
  Transmission Date: 20120608
  Serious: Yes (Other)
  Sender: FDA-Public Use
  Company Number: PHHY2010US14304

PATIENT
  Age: 51 Year
  Sex: Male

DRUGS (10)
  1. CYMBALTA [Concomitant]
  2. GLEEVEC [Suspect]
     Indication: GASTROINTESTINAL STROMAL TUMOUR
     Dosage: 400 MG, QD, ORAL
     Route: 048
     Dates: start: 20080201, end: 20100301
  3. MULTIVITAMINS (ASCORBIC ACID, ERGOCALCIFEROL, FOLIC ACID, NICOTINAMIDE [Concomitant]
  4. TRAMADOL HCL [Concomitant]
  5. ATIVAN [Concomitant]
  6. ATROVENT [Concomitant]
  7. PAROXETINE HCL [Concomitant]
  8. METOPROLOL TARTRATE [Concomitant]
  9. ASCORBIC ACID [Concomitant]
  10. GABAPENTIN [Concomitant]

REACTIONS (6)
  - DEPRESSION [None]
  - VOMITING [None]
  - FATIGUE [None]
  - RASH [None]
  - DYSPNOEA [None]
  - NAUSEA [None]
